FAERS Safety Report 14292663 (Version 1)
Quarter: 2017Q4

REPORT INFORMATION
  Report Type: Spontaneous
  Country: US (occurrence: US)
  Receive Date: 20171215
  Receipt Date: 20171215
  Transmission Date: 20180321
  Serious: No
  Sender: FDA-Public Use
  Company Number: US-WELLSTAT THERAPEUTICS CORPORATION-2037234

PATIENT
  Sex: Female

DRUGS (1)
  1. VISTOGARD [Suspect]
     Active Substance: URIDINE TRIACETATE
     Route: 048

REACTIONS (1)
  - Dysgeusia [Unknown]
